FAERS Safety Report 7481073-9 (Version None)
Quarter: 2011Q2

REPORT INFORMATION
  Report Type: 
  Country: None (occurrence: None)
  Receive Date: 20110516
  Receipt Date: 20090115
  Transmission Date: 20111010
  Serious: Yes (Death, Other)
  Sender: FDA-Public Use
  Company Number: US-BAYER-200911116NA

PATIENT
  Age: 77 Year
  Sex: Male
  Weight: 75.737 kg

DRUGS (13)
  1. IBUPROFEN [Concomitant]
     Route: 048
  2. ATENOLOL [Concomitant]
     Dosage: 100 MG, QD
     Route: 048
  3. SIMVASTATIN [Concomitant]
     Dosage: 20 MG/ DAILY
     Route: 048
  4. ACETYLSALICYLIC ACID SRT [Concomitant]
     Dosage: 325 MG / DAILY
     Route: 048
  5. NITROGLYCERIN [Concomitant]
     Dosage: TITRATED
     Route: 042
     Dates: start: 19980106
  6. HEPARIN [Concomitant]
     Dosage: TITRATION
     Route: 042
  7. LASIX [Concomitant]
     Dosage: TITRATED
     Route: 042
     Dates: start: 19980106
  8. CAPTOPRIL [Concomitant]
     Dosage: 25 MG, TID
     Route: 048
  9. TRASYLOL [Suspect]
     Indication: CORONARY ARTERY BYPASS
     Dosage: 200 ML BOLUS, THEN 50 ML/HOUR INFUSION
     Route: 042
     Dates: start: 19980106, end: 19980106
  10. ISOSORBIDE DINITRA [Concomitant]
     Dosage: 20 MG, TID
  11. NPH INSULIN [Concomitant]
     Dosage: 30 UNITS IN THEAM AND 10 UNITS IN THE PM
     Route: 058
  12. PRAVASTATIN [Concomitant]
     Dosage: 40 MG/1/2 TABLET
     Route: 048
  13. HYDROCHLOROTHIAZIDE [Concomitant]
     Dosage: 12.5 MG/ ? TAB DAILY
     Route: 048

REACTIONS (13)
  - FEAR [None]
  - UNEVALUABLE EVENT [None]
  - ANHEDONIA [None]
  - DEATH [None]
  - STRESS [None]
  - RENAL FAILURE [None]
  - EMOTIONAL DISTRESS [None]
  - RENAL IMPAIRMENT [None]
  - RENAL INJURY [None]
  - ANXIETY [None]
  - MULTI-ORGAN FAILURE [None]
  - PAIN [None]
  - INJURY [None]
